FAERS Safety Report 17745503 (Version 14)
Quarter: 2022Q1

REPORT INFORMATION
  Report Type: Report from Study
  Country: CA (occurrence: CA)
  Receive Date: 20200505
  Receipt Date: 20220314
  Transmission Date: 20220424
  Serious: Yes (Other)
  Sender: FDA-Public Use
  Company Number: PHHY2018CA055025

PATIENT
  Age: 85 Year
  Sex: Male

DRUGS (5)
  1. SANDOSTATIN LAR DEPOT [Suspect]
     Active Substance: OCTREOTIDE ACETATE
     Indication: Carcinoid tumour
     Dosage: 30 MG, Q4W
     Route: 030
     Dates: start: 20170330
  2. SANDOSTATIN LAR DEPOT [Suspect]
     Active Substance: OCTREOTIDE ACETATE
     Indication: Prostate cancer
  3. SANDOSTATIN LAR DEPOT [Suspect]
     Active Substance: OCTREOTIDE ACETATE
  4. ELIGARD [Concomitant]
     Active Substance: LEUPROLIDE ACETATE
     Indication: Product used for unknown indication
     Dosage: UNK (12+)
     Route: 065
  5. DAROLUTAMIDE [Concomitant]
     Active Substance: DAROLUTAMIDE
     Indication: Product used for unknown indication
     Dosage: 300 MG, BID (2 TABS)
     Route: 065
     Dates: start: 20210225

REACTIONS (22)
  - Macular degeneration [Unknown]
  - Prostate cancer recurrent [Unknown]
  - Glaucoma [Unknown]
  - Intraocular pressure increased [Recovering/Resolving]
  - Visual field defect [Unknown]
  - Metastases to lung [Unknown]
  - Metastases to liver [Unknown]
  - Metastases to spine [Unknown]
  - Atrial fibrillation [Unknown]
  - Heart rate irregular [Unknown]
  - Dementia [Unknown]
  - Intestinal dilatation [Unknown]
  - Fall [Recovered/Resolved]
  - Back pain [Recovered/Resolved]
  - Blood pressure systolic increased [Unknown]
  - Cystitis [Unknown]
  - Pyrexia [Unknown]
  - Dysuria [Unknown]
  - Blood urine present [Unknown]
  - Epistaxis [Unknown]
  - Heart rate decreased [Unknown]
  - Product use in unapproved indication [Unknown]

NARRATIVE: CASE EVENT DATE: 20180401
